FAERS Safety Report 5078970-0 (Version None)
Quarter: 2006Q3

REPORT INFORMATION
  Report Type: 
  Country: None (occurrence: None)
  Receive Date: 20060814
  Receipt Date: 20060802
  Transmission Date: 20061208
  Serious: Yes (Life-Threatening, Hospitalization, Other)
  Sender: FDA-Public Use
  Company Number: DE-JNJFOC-20060800536

PATIENT
  Sex: Female
  Weight: 15.4 kg

DRUGS (4)
  1. TOPAMAX [Suspect]
     Indication: COMPLEX PARTIAL SEIZURES
     Route: 048
  2. DIAZEPAM [Interacting]
     Indication: COMPLEX PARTIAL SEIZURES
  3. OSPOLOT [Suspect]
     Indication: COMPLEX PARTIAL SEIZURES
     Route: 048
  4. EUTHYROX [Concomitant]
     Route: 048

REACTIONS (4)
  - COMPLEX PARTIAL SEIZURES [None]
  - DRUG INTERACTION [None]
  - METABOLIC ACIDOSIS [None]
  - STATUS EPILEPTICUS [None]
